FAERS Safety Report 7542093-9 (Version None)
Quarter: 2011Q2

REPORT INFORMATION
  Report Type: 
  Country: None (occurrence: None)
  Receive Date: 20110524
  Receipt Date: 20110328
  Transmission Date: 20111010
  Serious: No
  Sender: FDA-Public Use
  Company Number: 030180

PATIENT
  Sex: Male
  Weight: 74.4 kg

DRUGS (15)
  1. CARAFATE [Concomitant]
  2. VITAMIN D [Concomitant]
  3. OMEPRAZOLE [Concomitant]
  4. CIMZIA [Suspect]
     Indication: CROHN'S DISEASE
     Dosage: (SUBCUTANEOUS), (400 MG 1X/4 WEEKS SUBCUTANEOUS)
     Route: 058
     Dates: start: 20080101, end: 20080101
  5. CIMZIA [Suspect]
     Indication: CROHN'S DISEASE
     Dosage: (SUBCUTANEOUS), (400 MG 1X/4 WEEKS SUBCUTANEOUS)
     Route: 058
     Dates: start: 20080101
  6. LABETALOL HCL [Concomitant]
  7. CYTRA-2 [Concomitant]
  8. AMLODIPINE [Concomitant]
  9. LYRICA [Concomitant]
  10. M.V.I. [Concomitant]
  11. CLARITIN /00917501/ [Concomitant]
  12. TRAMADOL HCL [Concomitant]
  13. CALCIUM W/VITAMIN D NOS [Concomitant]
  14. VITAMIN B12 /00260201/ [Concomitant]
  15. WELLBUTRIN [Concomitant]

REACTIONS (1)
  - INJECTION SITE PAIN [None]
